FAERS Safety Report 14939456 (Version 8)
Quarter: 2019Q2

REPORT INFORMATION
  Report Type: Spontaneous
  Country: US (occurrence: US)
  Receive Date: 20180525
  Receipt Date: 20190509
  Transmission Date: 20190711
  Serious: Yes (Disabling, Other)
  Sender: FDA-Public Use
  Company Number: US-PFIZER INC-2018210825

PATIENT
  Age: 47 Year
  Sex: Male

DRUGS (28)
  1. DILANTIN [Suspect]
     Active Substance: PHENYTOIN
     Dosage: 100 MG, 2X/DAY (BID)
     Route: 048
  2. DILANTIN [Suspect]
     Active Substance: PHENYTOIN
     Dosage: 400 MG, DAILY
     Route: 048
     Dates: start: 20140110
  3. LEXAPRO [Concomitant]
     Active Substance: ESCITALOPRAM OXALATE
     Dosage: 5 MG, 1X/DAY (QD)
  4. LEXAPRO [Concomitant]
     Active Substance: ESCITALOPRAM OXALATE
     Dosage: 20 MG, 1X/DAY (QD)
  5. FLEXERIL [Concomitant]
     Active Substance: CYCLOBENZAPRINE HYDROCHLORIDE
     Dosage: 1 DF, AT BED TIME AS NEEDED
     Route: 048
  6. DILANTIN [Suspect]
     Active Substance: PHENYTOIN
     Dosage: 100 MG, 3X/DAY (TID)
     Route: 048
  7. DILANTIN [Suspect]
     Active Substance: PHENYTOIN
     Dosage: 400 MG, DAILY
     Route: 048
     Dates: start: 20130510
  8. DILANTIN [Suspect]
     Active Substance: PHENYTOIN
     Dosage: 300 MG, DAILY
     Route: 048
  9. ZOLOFT [Concomitant]
     Active Substance: SERTRALINE HYDROCHLORIDE
     Dosage: 1 DF, 1X/DAY
  10. AUGMENTIN [Concomitant]
     Active Substance: AMOXICILLIN\CLAVULANATE POTASSIUM
     Dosage: 875 MG (ONE), 2X/DAY
     Route: 048
  11. LEXAPRO [Concomitant]
     Active Substance: ESCITALOPRAM OXALATE
     Dosage: 10 MG, 1X/DAY (QD)
  12. ASPIRIN. [Concomitant]
     Active Substance: ASPIRIN
     Dosage: UNK
  13. DILANTIN [Suspect]
     Active Substance: PHENYTOIN
     Dosage: 100 MG, ALTERNATE DAY
     Route: 048
  14. DILANTIN [Suspect]
     Active Substance: PHENYTOIN
     Dosage: 200 MG, DAILY
     Route: 048
  15. ALDARA [Concomitant]
     Active Substance: IMIQUIMOD
     Dosage: 3 TIMES PER WEEK FOR UP TO 16 WEEKS
  16. NAPROSYN [Concomitant]
     Active Substance: NAPROXEN
     Dosage: 1 DF, 2X/DAY (FOR 7 DAYS)
     Route: 048
  17. DILANTIN [Suspect]
     Active Substance: PHENYTOIN
     Dosage: 400 MG, DAILY (A DAY)
     Route: 048
  18. ACETAMINOPHEN;HYDROCODONE [Concomitant]
     Active Substance: ACETAMINOPHEN\HYDROCODONE
     Dosage: UNK
  19. ADVIL [Concomitant]
     Active Substance: IBUPROFEN
     Dosage: 200 MG, 4X/DAY (4 QD)
  20. ZOLOFT [Concomitant]
     Active Substance: SERTRALINE HYDROCHLORIDE
     Dosage: 1.5 DF, 1X/DAY
  21. BACTRIM DS [Concomitant]
     Active Substance: SULFAMETHOXAZOLE\TRIMETHOPRIM
     Dosage: 1 DF, 2X/DAY
     Route: 048
  22. DILANTIN [Suspect]
     Active Substance: PHENYTOIN
     Indication: GENERALISED TONIC-CLONIC SEIZURE
     Dosage: 100 MG, DAILY
     Route: 048
  23. DILANTIN [Suspect]
     Active Substance: PHENYTOIN
     Dosage: 200 MG, DAILY
     Route: 048
  24. DILANTIN [Suspect]
     Active Substance: PHENYTOIN
     Dosage: 300 MG, DAILY
     Route: 048
  25. DILANTIN [Suspect]
     Active Substance: PHENYTOIN
     Dosage: 100 MG, ALTERNATE DAY
     Route: 048
  26. VITAMIN D3 [Concomitant]
     Active Substance: CHOLECALCIFEROL
     Dosage: 1 DF, 1X/DAY
     Route: 048
  27. AMOXIL [Concomitant]
     Active Substance: AMOXICILLIN
     Dosage: 500 MG, 3X/DAY (TID FOR 2 WEEKS)
  28. MELATONIN [Concomitant]
     Active Substance: MELATONIN
     Dosage: 3 MG, UNK

REACTIONS (7)
  - Cerebellar atrophy [Not Recovered/Not Resolved]
  - Amnesia [Unknown]
  - Disturbance in attention [Unknown]
  - Cerebral atrophy [Unknown]
  - Cognitive disorder [Unknown]
  - Communication disorder [Unknown]
  - Confusional state [Unknown]

NARRATIVE: CASE EVENT DATE: 20171129
